FAERS Safety Report 7465888-9 (Version None)
Quarter: 2011Q2

REPORT INFORMATION
  Report Type: 
  Country: None (occurrence: None)
  Receive Date: 20110509
  Receipt Date: 20100414
  Transmission Date: 20111010
  Serious: No
  Sender: FDA-Public Use
  Company Number: US-ALEXION-A201000423

PATIENT
  Sex: Male

DRUGS (9)
  1. FOLIC ACID [Concomitant]
     Dosage: UNK
     Route: 048
  2. TYLENOL (CAPLET) [Concomitant]
     Dosage: UNK
     Route: 048
  3. ATIVAN [Concomitant]
     Dosage: UNK
     Route: 048
  4. VITAMIN A [Concomitant]
     Dosage: UNK
     Route: 048
  5. SOLIRIS [Suspect]
     Indication: PAROXYSMAL NOCTURNAL HAEMOGLOBINURIA
     Dosage: 900 MG, UNK
     Route: 042
  6. VITAMIN B12                        /00056201/ [Concomitant]
     Dosage: UNK
     Route: 048
  7. DESFERAL                           /00062903/ [Concomitant]
     Dosage: UNK
     Route: 051
  8. LASIX [Concomitant]
     Dosage: UNK
  9. POTASSIUM [Concomitant]
     Dosage: UNK
     Route: 048

REACTIONS (1)
  - TOOTH IMPACTED [None]
